FAERS Safety Report 5013938-1 (Version None)
Quarter: 2006Q2

REPORT INFORMATION
  Report Type: 
  Country: None (occurrence: None)
  Receive Date: 20060525
  Receipt Date: 20060512
  Transmission Date: 20061013
  Serious: Yes (Hospitalization)
  Sender: FDA-Public Use
  Company Number: FR200602005164

PATIENT
  Age: 38 Year
  Sex: Male
  Weight: 75 kg

DRUGS (7)
  1. ZYPREXA [Suspect]
     Indication: PSYCHOTIC DISORDER
     Dosage: 5 MG DAILY 1/D ORAL
     Route: 048
     Dates: start: 20020921, end: 20060101
  2. CITALOPRAM HYDROBROMIDE [Concomitant]
  3. URBANYL (CLOBAZAM) [Concomitant]
  4. IMOVANE (ZOPICLONE) [Concomitant]
  5. LEPTICUR (TROPATEPINE HYDROCHLORIDE) [Concomitant]
  6. NOCTRAN 10 (ACEPROMAZINE, ACEPROMAZINE, CLORAZEPATE DIPOTASSIUM) [Concomitant]
  7. ESPERAL (DISULFIRAM) [Concomitant]

REACTIONS (3)
  - ABNORMAL SLEEP-RELATED EVENT [None]
  - CONDITION AGGRAVATED [None]
  - SLEEP WALKING [None]
